FAERS Safety Report 23310251 (Version 4)
Quarter: 2025Q2

REPORT INFORMATION
  Report Type: Report from Study
  Country: FR (occurrence: FR)
  Receive Date: 20231218
  Receipt Date: 20250530
  Transmission Date: 20250717
  Serious: Yes (Hospitalization, Other)
  Sender: MYLAN
  Company Number: FR-ROCHE-3463471

PATIENT
  Age: 39 Year
  Sex: Male
  Weight: 76 kg

DRUGS (120)
  1. ETOPOSIDE [Suspect]
     Active Substance: ETOPOSIDE
     Indication: Diffuse large B-cell lymphoma stage III
     Dosage: 100 MILLIGRAM/SQ. METER, Q3W,  CYCLE 1 ARM 10
     Dates: start: 20231027, end: 20231029
  2. ETOPOSIDE [Suspect]
     Active Substance: ETOPOSIDE
     Dosage: 100 MILLIGRAM/SQ. METER, Q3W,  CYCLE 1 ARM 10
     Route: 042
     Dates: start: 20231027, end: 20231029
  3. ETOPOSIDE [Suspect]
     Active Substance: ETOPOSIDE
     Dosage: 100 MILLIGRAM/SQ. METER, Q3W,  CYCLE 1 ARM 10
     Route: 042
     Dates: start: 20231027, end: 20231029
  4. ETOPOSIDE [Suspect]
     Active Substance: ETOPOSIDE
     Dosage: 100 MILLIGRAM/SQ. METER, Q3W,  CYCLE 1 ARM 10
     Dates: start: 20231027, end: 20231029
  5. CARBOPLATIN [Suspect]
     Active Substance: CARBOPLATIN
     Indication: Diffuse large B-cell lymphoma stage III
     Dosage: 5 AUC, QD, INFUSION
     Dates: start: 20231028, end: 20231028
  6. CARBOPLATIN [Suspect]
     Active Substance: CARBOPLATIN
     Dosage: 5 AUC, QD, INFUSION
     Route: 042
     Dates: start: 20231028, end: 20231028
  7. CARBOPLATIN [Suspect]
     Active Substance: CARBOPLATIN
     Dosage: 5 AUC, QD, INFUSION
     Route: 042
     Dates: start: 20231028, end: 20231028
  8. CARBOPLATIN [Suspect]
     Active Substance: CARBOPLATIN
     Dosage: 5 AUC, QD, INFUSION
     Dates: start: 20231028, end: 20231028
  9. EPCORITAMAB [Suspect]
     Active Substance: EPCORITAMAB
     Indication: Diffuse large B-cell lymphoma stage III
     Route: 058
     Dates: start: 20231030, end: 20231030
  10. EPCORITAMAB [Suspect]
     Active Substance: EPCORITAMAB
     Dates: start: 20231030, end: 20231030
  11. EPCORITAMAB [Suspect]
     Active Substance: EPCORITAMAB
     Dates: start: 20231030, end: 20231030
  12. EPCORITAMAB [Suspect]
     Active Substance: EPCORITAMAB
     Route: 058
     Dates: start: 20231030, end: 20231030
  13. EPCORITAMAB [Suspect]
     Active Substance: EPCORITAMAB
     Route: 058
     Dates: start: 20231106, end: 20231106
  14. EPCORITAMAB [Suspect]
     Active Substance: EPCORITAMAB
     Dates: start: 20231106, end: 20231106
  15. EPCORITAMAB [Suspect]
     Active Substance: EPCORITAMAB
     Dates: start: 20231106, end: 20231106
  16. EPCORITAMAB [Suspect]
     Active Substance: EPCORITAMAB
     Route: 058
     Dates: start: 20231106, end: 20231106
  17. EPCORITAMAB [Suspect]
     Active Substance: EPCORITAMAB
     Route: 058
     Dates: start: 20231113
  18. EPCORITAMAB [Suspect]
     Active Substance: EPCORITAMAB
     Route: 058
     Dates: start: 20231113
  19. EPCORITAMAB [Suspect]
     Active Substance: EPCORITAMAB
     Dates: start: 20231113
  20. EPCORITAMAB [Suspect]
     Active Substance: EPCORITAMAB
     Dates: start: 20231113
  21. IFOSFAMIDE [Suspect]
     Active Substance: IFOSFAMIDE
     Indication: Diffuse large B-cell lymphoma stage III
     Dosage: 5000 MILLIGRAM/SQ. METER, Q3W, CYCLE 1 ARM 10, INFUSION
     Dates: start: 20231028, end: 20231029
  22. IFOSFAMIDE [Suspect]
     Active Substance: IFOSFAMIDE
     Dosage: 5000 MILLIGRAM/SQ. METER, Q3W, CYCLE 1 ARM 10, INFUSION
     Route: 042
     Dates: start: 20231028, end: 20231029
  23. IFOSFAMIDE [Suspect]
     Active Substance: IFOSFAMIDE
     Dosage: 5000 MILLIGRAM/SQ. METER, Q3W, CYCLE 1 ARM 10, INFUSION
     Route: 042
     Dates: start: 20231028, end: 20231029
  24. IFOSFAMIDE [Suspect]
     Active Substance: IFOSFAMIDE
     Dosage: 5000 MILLIGRAM/SQ. METER, Q3W, CYCLE 1 ARM 10, INFUSION
     Dates: start: 20231028, end: 20231029
  25. RITUXIMAB [Suspect]
     Active Substance: RITUXIMAB
     Indication: Diffuse large B-cell lymphoma stage III
     Dosage: 375 MILLIGRAM/SQ. METER, Q3W, CYCLE 1 ARM 10
     Dates: start: 20231027, end: 20231027
  26. RITUXIMAB [Suspect]
     Active Substance: RITUXIMAB
     Dosage: 375 MILLIGRAM/SQ. METER, Q3W, CYCLE 1 ARM 10
     Route: 042
     Dates: start: 20231027, end: 20231027
  27. RITUXIMAB [Suspect]
     Active Substance: RITUXIMAB
     Dosage: 375 MILLIGRAM/SQ. METER, Q3W, CYCLE 1 ARM 10
     Route: 042
     Dates: start: 20231027, end: 20231027
  28. RITUXIMAB [Suspect]
     Active Substance: RITUXIMAB
     Dosage: 375 MILLIGRAM/SQ. METER, Q3W, CYCLE 1 ARM 10
     Dates: start: 20231027, end: 20231027
  29. LANSOPRAZOLE [Concomitant]
     Active Substance: LANSOPRAZOLE
     Indication: Prophylaxis
     Dosage: 30 MILLIGRAM, BID
     Dates: start: 20231023
  30. LANSOPRAZOLE [Concomitant]
     Active Substance: LANSOPRAZOLE
     Dosage: 30 MILLIGRAM, BID
     Route: 048
     Dates: start: 20231023
  31. LANSOPRAZOLE [Concomitant]
     Active Substance: LANSOPRAZOLE
     Dosage: 30 MILLIGRAM, BID
     Route: 048
     Dates: start: 20231023
  32. LANSOPRAZOLE [Concomitant]
     Active Substance: LANSOPRAZOLE
     Dosage: 30 MILLIGRAM, BID
     Dates: start: 20231023
  33. POLARAMINE [Concomitant]
     Active Substance: DEXCHLORPHENIRAMINE MALEATE
     Indication: Premedication
     Dates: start: 20231113, end: 20231113
  34. POLARAMINE [Concomitant]
     Active Substance: DEXCHLORPHENIRAMINE MALEATE
     Route: 042
     Dates: start: 20231113, end: 20231113
  35. POLARAMINE [Concomitant]
     Active Substance: DEXCHLORPHENIRAMINE MALEATE
     Route: 042
     Dates: start: 20231113, end: 20231113
  36. POLARAMINE [Concomitant]
     Active Substance: DEXCHLORPHENIRAMINE MALEATE
     Dates: start: 20231113, end: 20231113
  37. AMOROLFINE [Concomitant]
     Active Substance: AMOROLFINE
     Dosage: 5 PERCENT, QW, WEEKLY
     Dates: start: 20230909
  38. AMOROLFINE [Concomitant]
     Active Substance: AMOROLFINE
     Dosage: 5 PERCENT, QW, WEEKLY
     Route: 065
     Dates: start: 20230909
  39. AMOROLFINE [Concomitant]
     Active Substance: AMOROLFINE
     Dosage: 5 PERCENT, QW, WEEKLY
     Route: 065
     Dates: start: 20230909
  40. AMOROLFINE [Concomitant]
     Active Substance: AMOROLFINE
     Dosage: 5 PERCENT, QW, WEEKLY
     Dates: start: 20230909
  41. SODIUM BICARBONATE [Concomitant]
     Active Substance: SODIUM BICARBONATE
     Indication: Prophylaxis
     Dosage: 1.4 PERCENT, QD, UNK, ONGOING, 1.4 PERCENT, MOTHWAS AFTER EVERY MEAL
     Dates: start: 20231027
  42. SODIUM BICARBONATE [Concomitant]
     Active Substance: SODIUM BICARBONATE
     Dosage: 1.4 PERCENT, QD, UNK, ONGOING, 1.4 PERCENT, MOTHWAS AFTER EVERY MEAL
     Route: 065
     Dates: start: 20231027
  43. SODIUM BICARBONATE [Concomitant]
     Active Substance: SODIUM BICARBONATE
     Dosage: 1.4 PERCENT, QD, UNK, ONGOING, 1.4 PERCENT, MOTHWAS AFTER EVERY MEAL
     Route: 065
     Dates: start: 20231027
  44. SODIUM BICARBONATE [Concomitant]
     Active Substance: SODIUM BICARBONATE
     Dosage: 1.4 PERCENT, QD, UNK, ONGOING, 1.4 PERCENT, MOTHWAS AFTER EVERY MEAL
     Dates: start: 20231027
  45. BISOPROLOL [Concomitant]
     Active Substance: BISOPROLOL
     Dosage: 1.25 MILLIGRAM, QD
     Dates: start: 20230218
  46. BISOPROLOL [Concomitant]
     Active Substance: BISOPROLOL
     Dosage: 1.25 MILLIGRAM, QD
     Route: 048
     Dates: start: 20230218
  47. BISOPROLOL [Concomitant]
     Active Substance: BISOPROLOL
     Dosage: 1.25 MILLIGRAM, QD
     Route: 048
     Dates: start: 20230218
  48. BISOPROLOL [Concomitant]
     Active Substance: BISOPROLOL
     Dosage: 1.25 MILLIGRAM, QD
     Dates: start: 20230218
  49. ONDANSETRON [Concomitant]
     Active Substance: ONDANSETRON
     Indication: Prophylaxis
     Dosage: 8 MILLIGRAM, BID
     Dates: start: 20231027, end: 20231029
  50. ONDANSETRON [Concomitant]
     Active Substance: ONDANSETRON
     Dosage: 8 MILLIGRAM, BID
     Route: 048
     Dates: start: 20231027, end: 20231029
  51. ONDANSETRON [Concomitant]
     Active Substance: ONDANSETRON
     Dosage: 8 MILLIGRAM, BID
     Route: 048
     Dates: start: 20231027, end: 20231029
  52. ONDANSETRON [Concomitant]
     Active Substance: ONDANSETRON
     Dosage: 8 MILLIGRAM, BID
     Dates: start: 20231027, end: 20231029
  53. BACTRIM [Concomitant]
     Active Substance: SULFAMETHOXAZOLE\TRIMETHOPRIM
     Indication: Prophylaxis
     Dosage: 400 MILLIGRAM, QD, ONGOING
     Dates: start: 20231028
  54. BACTRIM [Concomitant]
     Active Substance: SULFAMETHOXAZOLE\TRIMETHOPRIM
     Dosage: 400 MILLIGRAM, QD, ONGOING
     Route: 048
     Dates: start: 20231028
  55. BACTRIM [Concomitant]
     Active Substance: SULFAMETHOXAZOLE\TRIMETHOPRIM
     Dosage: 400 MILLIGRAM, QD, ONGOING
     Route: 048
     Dates: start: 20231028
  56. BACTRIM [Concomitant]
     Active Substance: SULFAMETHOXAZOLE\TRIMETHOPRIM
     Dosage: 400 MILLIGRAM, QD, ONGOING
     Dates: start: 20231028
  57. CICLOPIROX [Concomitant]
     Active Substance: CICLOPIROX
     Dosage: 8 PERCENT, BIWEEKLY, ONGOING, 2 TIMES PER WEEK (BIW)
     Dates: start: 20230809
  58. CICLOPIROX [Concomitant]
     Active Substance: CICLOPIROX
     Dosage: 8 PERCENT, BIWEEKLY, ONGOING, 2 TIMES PER WEEK (BIW)
     Route: 065
     Dates: start: 20230809
  59. CICLOPIROX [Concomitant]
     Active Substance: CICLOPIROX
     Dosage: 8 PERCENT, BIWEEKLY, ONGOING, 2 TIMES PER WEEK (BIW)
     Route: 065
     Dates: start: 20230809
  60. CICLOPIROX [Concomitant]
     Active Substance: CICLOPIROX
     Dosage: 8 PERCENT, BIWEEKLY, ONGOING, 2 TIMES PER WEEK (BIW)
     Dates: start: 20230809
  61. ACETAMINOPHEN [Concomitant]
     Active Substance: ACETAMINOPHEN
     Indication: Premedication
     Route: 042
     Dates: start: 20231106, end: 20231113
  62. ACETAMINOPHEN [Concomitant]
     Active Substance: ACETAMINOPHEN
     Indication: Erythema
     Dates: start: 20231106, end: 20231113
  63. ACETAMINOPHEN [Concomitant]
     Active Substance: ACETAMINOPHEN
     Dates: start: 20231106, end: 20231113
  64. ACETAMINOPHEN [Concomitant]
     Active Substance: ACETAMINOPHEN
     Route: 042
     Dates: start: 20231106, end: 20231113
  65. ACETAMINOPHEN [Concomitant]
     Active Substance: ACETAMINOPHEN
     Route: 042
     Dates: start: 20231114, end: 20231115
  66. ACETAMINOPHEN [Concomitant]
     Active Substance: ACETAMINOPHEN
     Dates: start: 20231114, end: 20231115
  67. ACETAMINOPHEN [Concomitant]
     Active Substance: ACETAMINOPHEN
     Dates: start: 20231114, end: 20231115
  68. ACETAMINOPHEN [Concomitant]
     Active Substance: ACETAMINOPHEN
     Route: 042
     Dates: start: 20231114, end: 20231115
  69. FOLIC ACID [Concomitant]
     Active Substance: FOLIC ACID
     Indication: Anaemia
     Dosage: 5 MILLIGRAM, QD, ONGOING
     Dates: start: 20231026
  70. FOLIC ACID [Concomitant]
     Active Substance: FOLIC ACID
     Dosage: 5 MILLIGRAM, QD, ONGOING
     Route: 065
     Dates: start: 20231026
  71. FOLIC ACID [Concomitant]
     Active Substance: FOLIC ACID
     Dosage: 5 MILLIGRAM, QD, ONGOING
     Route: 065
     Dates: start: 20231026
  72. FOLIC ACID [Concomitant]
     Active Substance: FOLIC ACID
     Dosage: 5 MILLIGRAM, QD, ONGOING
     Dates: start: 20231026
  73. VALACYCLOVIR HYDROCHLORIDE [Concomitant]
     Active Substance: VALACYCLOVIR HYDROCHLORIDE
     Indication: Prophylaxis
     Dosage: 500 MILLIGRAM, QD
     Dates: start: 20231028
  74. VALACYCLOVIR HYDROCHLORIDE [Concomitant]
     Active Substance: VALACYCLOVIR HYDROCHLORIDE
     Dosage: 500 MILLIGRAM, QD
     Route: 048
     Dates: start: 20231028
  75. VALACYCLOVIR HYDROCHLORIDE [Concomitant]
     Active Substance: VALACYCLOVIR HYDROCHLORIDE
     Dosage: 500 MILLIGRAM, QD
     Route: 048
     Dates: start: 20231028
  76. VALACYCLOVIR HYDROCHLORIDE [Concomitant]
     Active Substance: VALACYCLOVIR HYDROCHLORIDE
     Dosage: 500 MILLIGRAM, QD
     Dates: start: 20231028
  77. PREDNISONE [Concomitant]
     Active Substance: PREDNISONE
     Dosage: 60 MILLIGRAM, QD
     Dates: start: 20231020, end: 20231026
  78. PREDNISONE [Concomitant]
     Active Substance: PREDNISONE
     Dosage: 60 MILLIGRAM, QD
     Route: 048
     Dates: start: 20231020, end: 20231026
  79. PREDNISONE [Concomitant]
     Active Substance: PREDNISONE
     Dosage: 60 MILLIGRAM, QD
     Route: 048
     Dates: start: 20231020, end: 20231026
  80. PREDNISONE [Concomitant]
     Active Substance: PREDNISONE
     Dosage: 60 MILLIGRAM, QD
     Dates: start: 20231020, end: 20231026
  81. PREDNISONE [Concomitant]
     Active Substance: PREDNISONE
     Dosage: 80 MILLIGRAM, QD
     Dates: start: 20231028, end: 20231029
  82. PREDNISONE [Concomitant]
     Active Substance: PREDNISONE
     Dosage: 80 MILLIGRAM, QD
     Route: 048
     Dates: start: 20231028, end: 20231029
  83. PREDNISONE [Concomitant]
     Active Substance: PREDNISONE
     Dosage: 80 MILLIGRAM, QD
     Dates: start: 20231028, end: 20231029
  84. PREDNISONE [Concomitant]
     Active Substance: PREDNISONE
     Dosage: 80 MILLIGRAM, QD
     Route: 048
     Dates: start: 20231028, end: 20231029
  85. PREDNISONE [Concomitant]
     Active Substance: PREDNISONE
     Dosage: 100 MILLIGRAM, QD
     Route: 048
     Dates: start: 20231031, end: 20231102
  86. PREDNISONE [Concomitant]
     Active Substance: PREDNISONE
     Dosage: 100 MILLIGRAM, QD
     Route: 048
     Dates: start: 20231031, end: 20231102
  87. PREDNISONE [Concomitant]
     Active Substance: PREDNISONE
     Dosage: 100 MILLIGRAM, QD
     Dates: start: 20231031, end: 20231102
  88. PREDNISONE [Concomitant]
     Active Substance: PREDNISONE
     Dosage: 100 MILLIGRAM, QD
     Dates: start: 20231031, end: 20231102
  89. AZITHROMYCIN [Concomitant]
     Active Substance: AZITHROMYCIN
     Indication: Abdominal pain
     Dosage: 500 MILLIGRAM, QD
     Dates: start: 20231119, end: 20231120
  90. AZITHROMYCIN [Concomitant]
     Active Substance: AZITHROMYCIN
     Dosage: 500 MILLIGRAM, QD
     Route: 048
     Dates: start: 20231119, end: 20231120
  91. AZITHROMYCIN [Concomitant]
     Active Substance: AZITHROMYCIN
     Dosage: 500 MILLIGRAM, QD
     Route: 048
     Dates: start: 20231119, end: 20231120
  92. AZITHROMYCIN [Concomitant]
     Active Substance: AZITHROMYCIN
     Dosage: 500 MILLIGRAM, QD
     Dates: start: 20231119, end: 20231120
  93. ACUPAN [Concomitant]
     Active Substance: NEFOPAM HYDROCHLORIDE
     Indication: Phlebitis
     Dates: start: 20231114, end: 20231114
  94. ACUPAN [Concomitant]
     Active Substance: NEFOPAM HYDROCHLORIDE
     Route: 048
     Dates: start: 20231114, end: 20231114
  95. ACUPAN [Concomitant]
     Active Substance: NEFOPAM HYDROCHLORIDE
     Route: 048
     Dates: start: 20231114, end: 20231114
  96. ACUPAN [Concomitant]
     Active Substance: NEFOPAM HYDROCHLORIDE
     Dates: start: 20231114, end: 20231114
  97. FILGRASTIM [Concomitant]
     Active Substance: FILGRASTIM
     Indication: Prophylaxis
     Dosage: 30 MILLION INTERNATIONAL UNIT, QD
     Dates: start: 20231101, end: 20231105
  98. FILGRASTIM [Concomitant]
     Active Substance: FILGRASTIM
     Dosage: 30 MILLION INTERNATIONAL UNIT, QD
     Route: 058
     Dates: start: 20231101, end: 20231105
  99. FILGRASTIM [Concomitant]
     Active Substance: FILGRASTIM
     Dosage: 30 MILLION INTERNATIONAL UNIT, QD
     Route: 058
     Dates: start: 20231101, end: 20231105
  100. FILGRASTIM [Concomitant]
     Active Substance: FILGRASTIM
     Dosage: 30 MILLION INTERNATIONAL UNIT, QD
     Dates: start: 20231101, end: 20231105
  101. METRONIDAZOLE [Concomitant]
     Active Substance: METRONIDAZOLE
     Indication: Abdominal pain
     Dosage: 500 MILLIGRAM, TID
     Dates: start: 20231119, end: 20231120
  102. METRONIDAZOLE [Concomitant]
     Active Substance: METRONIDAZOLE
     Dosage: 500 MILLIGRAM, TID
     Route: 042
     Dates: start: 20231119, end: 20231120
  103. METRONIDAZOLE [Concomitant]
     Active Substance: METRONIDAZOLE
     Dosage: 500 MILLIGRAM, TID
     Route: 042
     Dates: start: 20231119, end: 20231120
  104. METRONIDAZOLE [Concomitant]
     Active Substance: METRONIDAZOLE
     Dosage: 500 MILLIGRAM, TID
     Dates: start: 20231119, end: 20231120
  105. PIPERACILLIN SODIUM\TAZOBACTAM SODIUM [Concomitant]
     Active Substance: PIPERACILLIN SODIUM\TAZOBACTAM SODIUM
     Indication: Abdominal pain
     Dosage: 4 GRAM, QID
     Dates: start: 20231120, end: 20231121
  106. PIPERACILLIN SODIUM\TAZOBACTAM SODIUM [Concomitant]
     Active Substance: PIPERACILLIN SODIUM\TAZOBACTAM SODIUM
     Dosage: 4 GRAM, QID
     Route: 042
     Dates: start: 20231120, end: 20231121
  107. PIPERACILLIN SODIUM\TAZOBACTAM SODIUM [Concomitant]
     Active Substance: PIPERACILLIN SODIUM\TAZOBACTAM SODIUM
     Dosage: 4 GRAM, QID
     Route: 042
     Dates: start: 20231120, end: 20231121
  108. PIPERACILLIN SODIUM\TAZOBACTAM SODIUM [Concomitant]
     Active Substance: PIPERACILLIN SODIUM\TAZOBACTAM SODIUM
     Dosage: 4 GRAM, QID
     Dates: start: 20231120, end: 20231121
  109. PRIMPERAN [Concomitant]
     Active Substance: METOCLOPRAMIDE HYDROCHLORIDE
     Dates: start: 20231114, end: 20231114
  110. PRIMPERAN [Concomitant]
     Active Substance: METOCLOPRAMIDE HYDROCHLORIDE
     Route: 065
     Dates: start: 20231114, end: 20231114
  111. PRIMPERAN [Concomitant]
     Active Substance: METOCLOPRAMIDE HYDROCHLORIDE
     Route: 065
     Dates: start: 20231114, end: 20231114
  112. PRIMPERAN [Concomitant]
     Active Substance: METOCLOPRAMIDE HYDROCHLORIDE
     Dates: start: 20231114, end: 20231114
  113. SOLU-MEDROL [Concomitant]
     Active Substance: METHYLPREDNISOLONE SODIUM SUCCINATE
     Dates: start: 20231027, end: 20231027
  114. SOLU-MEDROL [Concomitant]
     Active Substance: METHYLPREDNISOLONE SODIUM SUCCINATE
     Route: 042
     Dates: start: 20231027, end: 20231027
  115. SOLU-MEDROL [Concomitant]
     Active Substance: METHYLPREDNISOLONE SODIUM SUCCINATE
     Route: 042
     Dates: start: 20231027, end: 20231027
  116. SOLU-MEDROL [Concomitant]
     Active Substance: METHYLPREDNISOLONE SODIUM SUCCINATE
     Dates: start: 20231027, end: 20231027
  117. PREDNISONE [Concomitant]
     Active Substance: PREDNISONE
     Dates: start: 20231030, end: 20231030
  118. PREDNISONE [Concomitant]
     Active Substance: PREDNISONE
     Route: 042
     Dates: start: 20231030, end: 20231030
  119. PREDNISONE [Concomitant]
     Active Substance: PREDNISONE
     Route: 042
     Dates: start: 20231030, end: 20231030
  120. PREDNISONE [Concomitant]
     Active Substance: PREDNISONE
     Dates: start: 20231030, end: 20231030

REACTIONS (4)
  - Cytokine release syndrome [Recovered/Resolved]
  - Superficial vein thrombosis [Not Recovered/Not Resolved]
  - Erythema [Recovered/Resolved]
  - Pyrexia [Recovered/Resolved]

NARRATIVE: CASE EVENT DATE: 20231114
